FAERS Safety Report 8319137-X (Version None)
Quarter: 2012Q2

REPORT INFORMATION
  Report Type: 
  Country: None (occurrence: None)
  Receive Date: 20120427
  Receipt Date: 20120416
  Transmission Date: 20120825
  Serious: Yes (Hospitalization)
  Sender: FDA-Public Use
  Company Number: KR-MERCK-1204USA02529

PATIENT
  Age: 63 Year
  Sex: Female
  Weight: 54 kg

DRUGS (8)
  1. FOSAMAX [Suspect]
     Indication: OSTEOARTHRITIS
     Route: 048
  2. RISEDRONATE SODIUM [Suspect]
     Indication: OSTEOPOROSIS
     Route: 065
  3. CALCIUM CITRATE [Concomitant]
     Indication: OSTEOARTHRITIS
     Route: 065
  4. ALFACALCIDOL [Concomitant]
     Indication: OSTEOPOROSIS
     Route: 065
  5. RISEDRONATE SODIUM [Suspect]
     Indication: OSTEOARTHRITIS
     Route: 065
  6. FOSAMAX [Suspect]
     Route: 048
  7. ALFACALCIDOL [Concomitant]
     Indication: OSTEOARTHRITIS
     Route: 065
  8. CALCIUM CITRATE [Concomitant]
     Indication: OSTEOPOROSIS
     Route: 065

REACTIONS (6)
  - DYSPEPSIA [None]
  - FRACTURE DELAYED UNION [None]
  - FEMUR FRACTURE [None]
  - DRUG INEFFECTIVE [None]
  - IMPAIRED HEALING [None]
  - STRESS FRACTURE [None]
